FAERS Safety Report 21575976 (Version 1)
Quarter: 2022Q4

REPORT INFORMATION
  Report Type: Spontaneous
  Country: CA (occurrence: CA)
  Receive Date: 20221110
  Receipt Date: 20221110
  Transmission Date: 20230113
  Serious: Yes (Other)
  Sender: FDA-Public Use
  Company Number: CA-PFIZER INC-PV202200098881

PATIENT
  Age: 46 Year
  Sex: Female
  Weight: 70 kg

DRUGS (11)
  1. ROCURONIUM BROMIDE [Suspect]
     Active Substance: ROCURONIUM BROMIDE
     Dosage: 20 MG
  2. PROPOFOL [Suspect]
     Active Substance: PROPOFOL
     Indication: General anaesthesia
     Dosage: 200 MG
     Route: 042
  3. PROPOFOL [Suspect]
     Active Substance: PROPOFOL
     Dosage: 100-200 UG/KG/MIN, TITRATED TO BIS VALUES BETWEEN 40 AND 60
     Route: 042
  4. REMIFENTANIL [Suspect]
     Active Substance: REMIFENTANIL
     Indication: General anaesthesia
     Dosage: 100 UG
     Route: 042
  5. REMIFENTANIL [Suspect]
     Active Substance: REMIFENTANIL
     Dosage: 0.1 UG/KG/MIN, TITRATED TO MAINTAIN SYSTEMIC ARTERIAL PRESSURE WITHIN 20% OF BASELINE
     Route: 042
  6. MIDAZOLAM [Concomitant]
     Active Substance: MIDAZOLAM
     Indication: Anxiolytic therapy
     Dosage: 2.0 MG
  7. GLYCOPYRROLATE [Concomitant]
     Active Substance: GLYCOPYRROLATE
     Dosage: 0.3 MG
  8. LIDOCAINE [Concomitant]
     Active Substance: LIDOCAINE
     Dosage: 80 MG
  9. SUFENTANIL [Concomitant]
     Active Substance: SUFENTANIL
     Dosage: 15 UG
  10. DEXAMETHASONE [Concomitant]
     Active Substance: DEXAMETHASONE
     Indication: Prophylaxis of nausea and vomiting
     Dosage: 8 MG
  11. CLINDAMYCIN [Concomitant]
     Active Substance: CLINDAMYCIN
     Dosage: 600 MG

REACTIONS (1)
  - Hypotonia [Recovered/Resolved]
